FAERS Safety Report 19039585 (Version 1)
Quarter: 2021Q1

REPORT INFORMATION
  Report Type: Spontaneous
  Country: GB (occurrence: GB)
  Receive Date: 20210322
  Receipt Date: 20210322
  Transmission Date: 20210420
  Serious: Yes (Other)
  Sender: FDA-Public Use
  Company Number: GB-PFIZER INC-2021256696

PATIENT
  Age: 54 Year
  Sex: Female

DRUGS (12)
  1. EMPAGLIFLOZIN [Concomitant]
     Active Substance: EMPAGLIFLOZIN
     Indication: ILL-DEFINED DISORDER
     Dosage: UNK
  2. ALLOPURINOL. [Concomitant]
     Active Substance: ALLOPURINOL
     Indication: ILL-DEFINED DISORDER
     Dosage: UNK
  3. ATORVASTATIN [Concomitant]
     Active Substance: ATORVASTATIN
     Indication: ILL-DEFINED DISORDER
     Dosage: UNK
  4. PREGABALIN. [Concomitant]
     Active Substance: PREGABALIN
     Indication: ILL-DEFINED DISORDER
     Dosage: UNK
  5. ACETYLSALICYLIC ACID [Concomitant]
     Active Substance: ASPIRIN
     Indication: ILL-DEFINED DISORDER
     Dosage: UNK
  6. TOFACITINIB CITRATE [Suspect]
     Active Substance: TOFACITINIB CITRATE
     Indication: PSORIATIC ARTHROPATHY
     Dosage: 5 MG, 2X/DAY
     Route: 048
     Dates: start: 20190805, end: 20210205
  7. RAMIPRIL. [Concomitant]
     Active Substance: RAMIPRIL
     Indication: ILL-DEFINED DISORDER
     Dosage: UNK
  8. RAMIPRIL. [Concomitant]
     Active Substance: RAMIPRIL
     Indication: ILL-DEFINED DISORDER
     Dosage: UNK
  9. LEFLUNOMIDE. [Concomitant]
     Active Substance: LEFLUNOMIDE
     Indication: ILL-DEFINED DISORDER
     Dosage: UNK
  10. SOLIFENACIN [Concomitant]
     Active Substance: SOLIFENACIN
     Indication: ILL-DEFINED DISORDER
     Dosage: UNK
  11. GLICLAZIDE [Concomitant]
     Active Substance: GLICLAZIDE
     Indication: ILL-DEFINED DISORDER
     Dosage: UNK
  12. SUKKARTO [Concomitant]
     Active Substance: METFORMIN HYDROCHLORIDE
     Indication: ILL-DEFINED DISORDER
     Dosage: UNK

REACTIONS (1)
  - Dyslipidaemia [Unknown]

NARRATIVE: CASE EVENT DATE: 20210205
